FAERS Safety Report 9193512 (Version 1)
Quarter: 2013Q1

REPORT INFORMATION
  Report Type: Spontaneous
  Country: US (occurrence: US)
  Receive Date: 20130327
  Receipt Date: 20130327
  Transmission Date: 20140127
  Serious: No
  Sender: FDA-Public Use
  Company Number: US-ASTRAZENECA-2012SE96481

PATIENT
  Age: 11 Month
  Sex: Male
  Weight: 8.4 kg

DRUGS (3)
  1. NEXIUM [Suspect]
     Indication: GASTROOESOPHAGEAL REFLUX DISEASE
     Dosage: HALF CAPSULE DISSOLVE IN 5ML WATER
     Route: 048
     Dates: start: 20120829
  2. SYNAGIS [Suspect]
     Dosage: 1.21 ML, 15MG/ML, OF MONTH
     Route: 030
     Dates: start: 20121016, end: 20121117
  3. METOCLOPROMIDE [Concomitant]
     Indication: GASTROOESOPHAGEAL REFLUX DISEASE

REACTIONS (5)
  - Cough [Unknown]
  - Rhinorrhoea [Unknown]
  - Conjunctival hyperaemia [Unknown]
  - Respiratory rate increased [Unknown]
  - Respiratory syncytial virus infection [Recovered/Resolved]
